FAERS Safety Report 9306007 (Version 1)
Quarter: 2013Q2

REPORT INFORMATION
  Report Type: Spontaneous
  Country: IT (occurrence: None)
  Receive Date: 20130520
  Receipt Date: 20130520
  Transmission Date: 20140414
  Serious: Yes (Other)
  Sender: FDA-Public Use
  Company Number: DKLU1091028

PATIENT
  Age: 5 Year
  Sex: Male

DRUGS (7)
  1. COSMEGEN [Suspect]
     Indication: AESTHESIONEUROBLASTOMA
  2. VINCRISTINE (VINCRISTINE) (UNKNOWN) [Suspect]
     Indication: AESTHESIONEUROBLASTOMA
  3. ADRIAMYCIN [Suspect]
     Indication: AESTHESIONEUROBLASTOMA
  4. CYCLOPHOSPHAMIDE (CYCLOPHOSPHAMIDE) [Suspect]
     Indication: AESTHESIONEUROBLASTOMA
  5. CISPLATIN (CISPLATIN) [Suspect]
     Indication: AESTHESIONEUROBLASTOMA
  6. ETOPOSIDE (ETOPOSIDE) [Suspect]
     Indication: AESTHESIONEUROBLASTOMA
  7. METHOTREXATE (METHOTREXATE) [Suspect]
     Indication: AESTHESIONEUROBLASTOMA
     Route: 039

REACTIONS (5)
  - Growth hormone deficiency [None]
  - Hypothyroidism [None]
  - Amaurosis [None]
  - Bone disorder [None]
  - Dry mouth [None]
